FAERS Safety Report 9852714 (Version 1)
Quarter: 2014Q1

REPORT INFORMATION
  Report Type: Spontaneous
  Country: CM (occurrence: None)
  Receive Date: 20140127
  Receipt Date: 20140127
  Transmission Date: 20141002
  Serious: Yes (Death)
  Sender: FDA-Public Use
  Company Number: 2014HINOTH0003

PATIENT
  Age: 31 Year
  Sex: Female

DRUGS (7)
  1. LAMIVUDINE [Suspect]
     Indication: ANTIRETROVIRAL THERAPY
     Route: 048
     Dates: start: 20131022, end: 20131027
  2. TRUVADA (TENOFOVIR DISPROXIL FUMARATE+EMTRICITABINE) [Concomitant]
  3. PREZISTA (DARNUNAVIR) [Concomitant]
  4. PREZISTA (DARNUNAVIR) [Concomitant]
  5. NORVIR (RITONAVIR) [Concomitant]
  6. NOVIR (RITONAVIR) [Concomitant]
  7. BARACLUDE (ENETRCAVIR) [Concomitant]

REACTIONS (2)
  - Stillbirth [None]
  - Maternal drugs affecting foetus [None]
